FAERS Safety Report 10160837 (Version 2)
Quarter: 2014Q4

REPORT INFORMATION
  Report Type: Spontaneous
  Country: US (occurrence: US)
  Receive Date: 20140508
  Receipt Date: 20141014
  Transmission Date: 20150528
  Serious: Yes (Death)
  Sender: FDA-Public Use
  Company Number: US-PFIZER INC-2014122699

PATIENT
  Age: 17 Year
  Sex: Male

DRUGS (4)
  1. CARBENICILLIN INDANYL SODIUM [Suspect]
     Active Substance: CARBENICILLIN INDANYL SODIUM
     Dosage: UNK
     Route: 042
  2. ALBUMIN [Suspect]
     Active Substance: ALBUMIN (HUMAN)
     Route: 042
  3. LINCOMYCIN [Concomitant]
     Active Substance: LINCOMYCIN
     Dosage: 300 MG, UNK
     Dates: start: 19730117
  4. LINCOMYCIN [Concomitant]
     Active Substance: LINCOMYCIN
     Indication: UPPER RESPIRATORY TRACT INFECTION
     Dosage: 300 MG, UNK
     Route: 030
     Dates: start: 19730112

REACTIONS (1)
  - Drug ineffective [Fatal]
